FAERS Safety Report 9915938 (Version 1)
Quarter: 2014Q1

REPORT INFORMATION
  Report Type: Report from Study
  Country: FR (occurrence: FR)
  Receive Date: 20140221
  Receipt Date: 20140221
  Transmission Date: 20141002
  Serious: Yes (Hospitalization)
  Sender: FDA-Public Use
  Company Number: FR-ROCHE-1347389

PATIENT
  Sex: Male

DRUGS (23)
  1. RITUXIMAB [Suspect]
     Indication: RHEUMATOID ARTHRITIS
     Dosage: DAY 1
     Route: 042
     Dates: start: 20070216
  2. RITUXIMAB [Suspect]
     Dosage: DAY 15
     Route: 042
     Dates: start: 20070306
  3. RITUXIMAB [Suspect]
     Dosage: DAY 1
     Route: 042
     Dates: start: 20090618
  4. RITUXIMAB [Suspect]
     Dosage: DAY 15
     Route: 042
     Dates: start: 20090702
  5. RITUXIMAB [Suspect]
     Dosage: DAY 1
     Route: 042
     Dates: start: 20100727
  6. RITUXIMAB [Suspect]
     Dosage: DAY 15
     Route: 042
     Dates: start: 20100810
  7. RITUXIMAB [Suspect]
     Dosage: DAY 1
     Route: 042
     Dates: start: 20110201
  8. RITUXIMAB [Suspect]
     Dosage: DAY 15
     Route: 042
     Dates: start: 20110215
  9. RITUXIMAB [Suspect]
     Dosage: DAY 1
     Route: 042
     Dates: start: 20111012
  10. RITUXIMAB [Suspect]
     Dosage: DAY 15
     Route: 042
     Dates: start: 20111026
  11. RITUXIMAB [Suspect]
     Dosage: DAY 1
     Route: 042
     Dates: start: 20120509
  12. RITUXIMAB [Suspect]
     Dosage: DAY 15
     Route: 042
     Dates: start: 20120523
  13. RITUXIMAB [Suspect]
     Dosage: DAY 1
     Route: 042
     Dates: start: 20121107
  14. RITUXIMAB [Suspect]
     Dosage: DAY 15
     Route: 042
     Dates: start: 20121121
  15. LEFLUNOMIDE [Concomitant]
  16. CORTANCYL [Concomitant]
     Route: 065
  17. CORTANCYL [Concomitant]
     Route: 065
  18. CORTANCYL [Concomitant]
     Route: 065
  19. CORTANCYL [Concomitant]
     Route: 065
  20. CORTANCYL [Concomitant]
     Route: 065
  21. CORTANCYL [Concomitant]
     Route: 065
  22. CORTANCYL [Concomitant]
     Route: 065
  23. CORTANCYL [Concomitant]
     Route: 065

REACTIONS (10)
  - Arthritis bacterial [Unknown]
  - Helicobacter gastritis [Recovered/Resolved]
  - Lung disorder [Recovered/Resolved]
  - Rhinorrhoea [Unknown]
  - Erysipelas [Recovered/Resolved]
  - Wound infection [Not Recovered/Not Resolved]
  - Sinusitis [Recovered/Resolved]
  - Salivary gland calculus [Not Recovered/Not Resolved]
  - Knee deformity [Recovered/Resolved]
  - Erysipelas [Recovered/Resolved]
